FAERS Safety Report 6419449-0 (Version None)
Quarter: 2009Q4

REPORT INFORMATION
  Report Type: 
  Country: None (occurrence: None)
  Receive Date: 20091029
  Receipt Date: 20091022
  Transmission Date: 20100525
  Serious: Yes (Hospitalization)
  Sender: FDA-Public Use
  Company Number: US-WYE-H11194809

PATIENT
  Age: 69 Year
  Sex: Male
  Weight: 80.4 kg

DRUGS (14)
  1. TEMSIROLIMUS [Suspect]
     Indication: RENAL CELL CARCINOMA
     Dosage: 25 MG ON DAYS 1,8,15 AND 22 (TOTAL DOSE THIS COURSE 25 MG)
     Route: 042
     Dates: start: 20090520, end: 20090810
  2. VALACYCLOVIR HCL [Concomitant]
     Dosage: 500 MG 2 TIMES EVERY DAY AS NEEDED
     Route: 048
  3. PROCHLORPERAZINE MALEATE [Concomitant]
     Dosage: 10 MG 2 TIMES A DAY AS NEEDED
     Route: 048
  4. LOSARTAN POTASSIUM AND HYDROCHLOROTHIAZIDE [Concomitant]
     Dosage: 100-25 MG ONCE A DAY
     Route: 048
  5. ALEVE [Concomitant]
     Dosage: DOSE NOT PROVIDED
     Route: 048
  6. NEURONTIN [Concomitant]
     Route: 048
  7. METOPROLOL TARTRATE [Concomitant]
     Route: 048
  8. AMLODIPINE [Concomitant]
     Route: 048
  9. OMEPRAZOLE MAGNESIUM [Concomitant]
     Route: 048
  10. PERCOCET [Concomitant]
     Dosage: 5-325 MG AS NEEDED
     Route: 048
  11. IBUPROFEN [Concomitant]
     Dosage: 4 TABLETS AS NEEDED, DOSE NOT PROVIDED
     Route: 048
  12. BACLOFEN [Concomitant]
     Route: 048
  13. BEVACIZUMAB [Suspect]
     Indication: RENAL CELL CARCINOMA
     Dosage: 10 MG/KG ON DAYS 1 AND 15 (TOTAL DOSE THIS COURSE 790 MG)
     Dates: start: 20090520, end: 20090810
  14. ASPIRIN [Concomitant]
     Route: 048

REACTIONS (2)
  - ANAEMIA [None]
  - DEHYDRATION [None]
